FAERS Safety Report 24179247 (Version 1)
Quarter: 2024Q3

REPORT INFORMATION
  Report Type: Spontaneous
  Country: US (occurrence: US)
  Receive Date: 20240806
  Receipt Date: 20240806
  Transmission Date: 20241016
  Serious: Yes (Other)
  Sender: BRISTOL MYERS SQUIBB
  Company Number: US-BRISTOL-MYERS SQUIBB COMPANY-2024-122952

PATIENT
  Age: 83 Year
  Sex: Female
  Weight: 45.81 kg

DRUGS (1)
  1. REVLIMID [Suspect]
     Active Substance: LENALIDOMIDE
     Indication: Plasma cell myeloma
     Dosage: 2.5MG CAPSULE EVERY OTHER DAY FOR 21 DAYS OUT OF 28 DAYS
     Route: 048

REACTIONS (2)
  - Plasma cell myeloma [Unknown]
  - Off label use [Unknown]
